FAERS Safety Report 21766041 (Version 1)
Quarter: 2022Q4

REPORT INFORMATION
  Report Type: Spontaneous
  Country: US (occurrence: None)
  Receive Date: 20221221
  Receipt Date: 20221221
  Transmission Date: 20230113
  Serious: Yes (Hospitalization)
  Sender: FDA-Public Use
  Company Number: None

PATIENT
  Sex: Female

DRUGS (2)
  1. AVONEX PEN [Suspect]
     Active Substance: INTERFERON BETA-1A
  2. VITAMIN B12 TAB [Concomitant]

REACTIONS (1)
  - Renal disorder [None]
